FAERS Safety Report 5447164-9 (Version None)
Quarter: 2007Q3

REPORT INFORMATION
  Report Type: 
  Country: None (occurrence: None)
  Receive Date: 20070910
  Receipt Date: 20070831
  Transmission Date: 20080115
  Serious: Yes (Disabling)
  Sender: FDA-Public Use
  Company Number: PHBS2007PT14411

PATIENT
  Age: 74 Year
  Sex: Female

DRUGS (6)
  1. LESCOL XL [Suspect]
     Indication: HYPERCHOLESTEROLAEMIA
     Dosage: 80 MG/D
     Route: 048
     Dates: start: 20060801, end: 20070501
  2. LOPRAZOLAM [Concomitant]
     Dosage: 5 MG/D
     Route: 048
  3. PROPRANOLOL HYDROCHLORIDE [Concomitant]
     Dosage: 20 MG/D
     Route: 048
  4. GLUCOSAMINE SULFATE SODIUM CHLORIDE [Concomitant]
     Dosage: 250 MG/D
     Route: 048
  5. CANDESARTAN CILEXETIL [Concomitant]
     Dosage: 8 MG/D
     Route: 048
  6. ALENDRONIC ACID [Concomitant]
     Route: 048

REACTIONS (2)
  - BACK PAIN [None]
  - GAIT DISTURBANCE [None]
